FAERS Safety Report 7243758-9 (Version None)
Quarter: 2011Q1

REPORT INFORMATION
  Report Type: 
  Country: None (occurrence: None)
  Receive Date: 20110125
  Receipt Date: 20110119
  Transmission Date: 20110831
  Serious: No
  Sender: FDA-Public Use
  Company Number: US-PFIZER INC-2011013512

PATIENT
  Sex: Female
  Weight: 68 kg

DRUGS (2)
  1. PREMARIN [Suspect]
     Indication: OESTROGEN REPLACEMENT THERAPY
     Dosage: 0.625 MG, 1X/DAY
     Dates: end: 20110113
  2. PREMARIN [Suspect]
     Dosage: 1.25 MG, 1X/DAY
     Dates: start: 19890101

REACTIONS (1)
  - URTICARIA [None]
